FAERS Safety Report 16819773 (Version 1)
Quarter: 2019Q3

REPORT INFORMATION
  Report Type: Spontaneous
  Country: CN (occurrence: CN)
  Receive Date: 20190917
  Receipt Date: 20190917
  Transmission Date: 20191005
  Serious: Yes (Hospitalization)
  Sender: FDA-Public Use
  Company Number: CN-ASTRAZENECA-2019SE84311

PATIENT
  Age: 1280 Day
  Sex: Male
  Weight: 13 kg

DRUGS (6)
  1. AMBROXOL HYDROCHLORIDE [Concomitant]
     Active Substance: AMBROXOL HYDROCHLORIDE
     Indication: ANTIVIRAL TREATMENT
     Route: 041
     Dates: start: 20190331, end: 20190402
  2. VIDARABINE MONOPHOSPHATE [Concomitant]
     Active Substance: VIDARABINE PHOSPHATE
     Indication: COUGH
     Route: 041
     Dates: start: 20190401, end: 20190402
  3. BUDESONIDE SUSPENSION FOR INHALATION [Suspect]
     Active Substance: BUDESONIDE
     Indication: LARYNGEAL OEDEMA
     Route: 055
     Dates: start: 20190331, end: 20190402
  4. VIDARABINE MONOPHOSPHATE [Concomitant]
     Active Substance: VIDARABINE PHOSPHATE
     Indication: SPUTUM ABNORMAL
     Route: 041
     Dates: start: 20190401, end: 20190402
  5. DOXOFYLLINE [Concomitant]
     Active Substance: DOXOFYLLINE
     Indication: OBSTRUCTIVE AIRWAYS DISORDER
     Route: 041
     Dates: start: 20190402, end: 20190402
  6. CEFMENOXIME HYDROCHLORIDE [Suspect]
     Active Substance: CEFMENOXIME HYDROCHLORIDE
     Indication: ANTI-INFECTIVE THERAPY
     Route: 041
     Dates: start: 20190403, end: 20190403

REACTIONS (4)
  - Rash generalised [Recovered/Resolved]
  - Cough [Unknown]
  - Pruritus [Recovered/Resolved]
  - Urticaria [Recovered/Resolved]

NARRATIVE: CASE EVENT DATE: 20190402
